FAERS Safety Report 8152921 (Version 11)
Quarter: 2012Q4

REPORT INFORMATION
  Report Type: 
  Country: US (occurrence: US)
  Receive Date: 20110922
  Receipt Date: 20120920
  Transmission Date: 20130627
  Serious: Yes (Hospitalization, Other)
  Sender: FDA-Public Use
  Company Number: US-009507513-1109USA02410

PATIENT

DRUGS (6)
  1. FOSAMAX [Suspect]
     Indication: OSTEOPOROSIS
     Dosage: 70 mg, UNK
     Route: 048
     Dates: start: 1997
  2. FOSAMAX [Suspect]
     Dosage: 10 mg, qd
     Route: 048
     Dates: start: 19990825
  3. FOSAMAX [Suspect]
     Dosage: 70 mg, UNK
     Route: 048
     Dates: end: 200107
  4. VITAMIN D (UNSPECIFIED) [Concomitant]
     Route: 048
     Dates: start: 1996
  5. SYNTHROID [Concomitant]
     Indication: HYPOTHYROIDISM
     Dates: start: 1988
  6. ACTONEL [Suspect]
     Indication: OSTEOPOROSIS
     Dosage: ^approx 1999-2005^ ^appr 2003 to 2008^
     Route: 048
     Dates: start: 1999, end: 2008

REACTIONS (33)
  - Femur fracture [Recovering/Resolving]
  - Open reduction of fracture [Recovering/Resolving]
  - Breast cancer [Unknown]
  - Contrast media allergy [Unknown]
  - Foot fracture [Unknown]
  - Vitamin D deficiency [Unknown]
  - Sarcoidosis [Not Recovered/Not Resolved]
  - Endometrial hypertrophy [Unknown]
  - Loose tooth [Unknown]
  - Delirium [Unknown]
  - Osteoarthritis [Unknown]
  - Intervertebral disc protrusion [Unknown]
  - Muscle strain [Unknown]
  - Tendonitis [Unknown]
  - Bursitis [Unknown]
  - Papilloma [Unknown]
  - Seborrhoeic keratosis [Unknown]
  - Skin papilloma [Unknown]
  - Hypercholesterolaemia [Unknown]
  - Palpitations [Not Recovered/Not Resolved]
  - Device failure [Unknown]
  - Foot fracture [Recovering/Resolving]
  - Nail disorder [Unknown]
  - Skin lesion [Unknown]
  - Fall [Unknown]
  - Hand fracture [Unknown]
  - Drug hypersensitivity [Unknown]
  - Urticaria [Unknown]
  - Back pain [Unknown]
  - Arthralgia [Unknown]
  - Gastrooesophageal reflux disease [Not Recovered/Not Resolved]
  - Pain in extremity [Unknown]
  - Muscle spasms [Unknown]
